FAERS Safety Report 9235981 (Version 1)
Quarter: 2013Q2

REPORT INFORMATION
  Report Type: Spontaneous
  Country: US (occurrence: None)
  Receive Date: 20130416
  Receipt Date: 20130416
  Transmission Date: 20140414
  Serious: Yes (Hospitalization)
  Sender: FDA-Public Use
  Company Number: None

PATIENT
  Age: 65 Year
  Sex: Female
  Weight: 96.62 kg

DRUGS (1)
  1. BRENTUXIMAB VEDOTIN ADCETRIS [Suspect]
     Indication: HODGKIN^S DISEASE
     Route: 042
     Dates: start: 20130315, end: 20130404

REACTIONS (4)
  - Diarrhoea [None]
  - Abdominal pain [None]
  - Hypotension [None]
  - Pancreatitis [None]
